FAERS Safety Report 10167955 (Version 12)
Quarter: 2014Q4

REPORT INFORMATION
  Report Type: Spontaneous
  Country: US (occurrence: US)
  Receive Date: 20140512
  Receipt Date: 20141112
  Transmission Date: 20150528
  Serious: Yes (Hospitalization, Disabling, Other)
  Sender: FDA-Public Use
  Company Number: US-GLAXOSMITHKLINE-A1072700A

PATIENT
  Age: 48 Year
  Sex: Female

DRUGS (7)
  1. FLOLAN [Suspect]
     Active Substance: EPOPROSTENOL SODIUM
     Dosage: UNK
     Dates: start: 19990719
  2. TRACLEER [Concomitant]
     Active Substance: BOSENTAN\BOSENTAN MONOHYDRATE
  3. FLOLAN [Suspect]
     Active Substance: EPOPROSTENOL SODIUM
     Dosage: UNK
     Dates: start: 19990719
  4. FLOLAN [Suspect]
     Active Substance: EPOPROSTENOL SODIUM
     Dosage: UNK
     Dates: start: 19990719
  5. FLOLAN [Suspect]
     Active Substance: EPOPROSTENOL SODIUM
     Dosage: 95 NG/KG/MIN (CONCENTRATION 75,000 NG/ML; PUMP RATE 94 ML/DAY; VIAL STRENGTH 1.5 MG)
     Route: 042
     Dates: start: 19990719
  6. FLOLAN [Suspect]
     Active Substance: EPOPROSTENOL SODIUM
     Dosage: 33 NG/KG/MIN
  7. FLOLAN [Suspect]
     Active Substance: EPOPROSTENOL SODIUM
     Indication: PULMONARY ARTERIAL HYPERTENSION
     Dosage: 95 NG/KG/MIN; 75,000 NG/ML; 94 ML/DAY; VIAL STRENGTH 1.5 MG
     Route: 042
     Dates: start: 19990719

REACTIONS (16)
  - Right ventricular failure [Recovering/Resolving]
  - Right atrial dilatation [Not Recovered/Not Resolved]
  - Hospitalisation [Not Recovered/Not Resolved]
  - Pericardial effusion [Unknown]
  - Diarrhoea [Recovered/Resolved]
  - Condition aggravated [Unknown]
  - Device related infection [Recovering/Resolving]
  - Pulmonary arterial hypertension [Not Recovered/Not Resolved]
  - Oedema [Recovering/Resolving]
  - Bacteraemia [Recovering/Resolving]
  - Cardiac failure congestive [Unknown]
  - Haemoptysis [Recovering/Resolving]
  - Nausea [Recovered/Resolved]
  - Ascites [Recovered/Resolved]
  - Right ventricular dysfunction [Unknown]
  - Vomiting [Recovered/Resolved]

NARRATIVE: CASE EVENT DATE: 201404
